FAERS Safety Report 7786281-5 (Version None)
Quarter: 2011Q3

REPORT INFORMATION
  Report Type: 
  Country: None (occurrence: None)
  Receive Date: 20110929
  Receipt Date: 20110916
  Transmission Date: 20111222
  Serious: Yes (Hospitalization, Disabling)
  Sender: FDA-Public Use
  Company Number: PHHY2011CA67440

PATIENT
  Sex: Male

DRUGS (5)
  1. OXYCONTIN [Concomitant]
     Dosage: UNK
  2. ADALAT CC [Concomitant]
     Dosage: UNK
  3. AMITRIPTYLINE HCL [Concomitant]
     Dosage: UNK
  4. DIOVAN HCT [Concomitant]
     Dosage: UNK
  5. ALISKIREN [Suspect]
     Indication: HYPERTENSION
     Dosage: 150 MG, DAILY
     Route: 048

REACTIONS (1)
  - PERIPHERAL ISCHAEMIA [None]
